FAERS Safety Report 8576889-1 (Version None)
Quarter: 2012Q2

REPORT INFORMATION
  Report Type: 
  Country: None (occurrence: None)
  Receive Date: 20120423
  Receipt Date: 20100222
  Transmission Date: 20120825
  Serious: Yes (Hospitalization)
  Sender: FDA-Public Use
  Company Number: PHEH2009US11285

PATIENT
  Age: 32 Year
  Sex: Female

DRUGS (2)
  1. EXJADE [Suspect]
     Indication: SICKLE CELL ANAEMIA
     Dosage: 1500 MG, QD, ORAL : 500 MG, BID, ORAL
     Route: 048
     Dates: start: 20071001
  2. EXJADE [Suspect]
     Indication: IRON OVERLOAD
     Dosage: 1500 MG, QD, ORAL : 500 MG, BID, ORAL
     Route: 048
     Dates: start: 20071001

REACTIONS (4)
  - PAIN [None]
  - HEADACHE [None]
  - SICKLE CELL ANAEMIA WITH CRISIS [None]
  - DIARRHOEA [None]
